FAERS Safety Report 9667958 (Version 2)
Quarter: 2013Q4

REPORT INFORMATION
  Report Type: Spontaneous
  Country: CA (occurrence: CA)
  Receive Date: 20131104
  Receipt Date: 20131113
  Transmission Date: 20140711
  Serious: Yes (Death, Other)
  Sender: FDA-Public Use
  Company Number: CA-GLAXOSMITHKLINE-A1046397A

PATIENT
  Age: 47 Year
  Sex: Female
  Weight: 64 kg

DRUGS (19)
  1. FLOLAN [Suspect]
     Indication: PULMONARY HYPERTENSION
     Route: 055
     Dates: start: 20131018, end: 20131020
  2. FLOLAN DILUENT [Suspect]
     Indication: PULMONARY HYPERTENSION
     Route: 055
     Dates: start: 20131018, end: 20131020
  3. ACYCLOVIR [Concomitant]
     Route: 042
  4. BACTRIM [Concomitant]
     Dosage: 45ML PER DAY
     Route: 042
  5. SOLUMEDROL [Concomitant]
     Dosage: 40MG PER DAY
     Route: 042
  6. METOCLOPRAMIDE [Concomitant]
     Dosage: 20MG PER DAY
     Route: 042
  7. BISOPROLOL [Concomitant]
  8. CLONAZEPAM [Concomitant]
  9. DEXMEDETOMIDINE HYDROCHLORIDE [Concomitant]
  10. ENOXAPARIN [Concomitant]
  11. ERYTROMYCIN [Concomitant]
  12. FOLIC ACID [Concomitant]
  13. HYDROMORPHONE [Concomitant]
  14. SALBUTAMOL [Concomitant]
  15. NOREPINEPHRINE [Concomitant]
  16. ALBUMIN [Concomitant]
  17. ACETAMINOPHEN [Concomitant]
  18. CALCIUM CHLORIDE [Concomitant]
  19. METHYLNALTREXONE BROMIDE [Concomitant]

REACTIONS (6)
  - Blood lactic acid increased [Recovering/Resolving]
  - Off label use [Recovered/Resolved]
  - Liver function test abnormal [Not Recovered/Not Resolved]
  - Sepsis [Fatal]
  - Pneumonia [Fatal]
  - Acute right ventricular failure [Unknown]
